FAERS Safety Report 6542264-4 (Version None)
Quarter: 2010Q1

REPORT INFORMATION
  Report Type: 
  Country: None (occurrence: None)
  Receive Date: 20100114
  Receipt Date: 20100114
  Transmission Date: 20100710
  Serious: Yes (Hospitalization)
  Sender: FDA-Public Use
  Company Number: None

PATIENT
  Age: 59 Year
  Sex: Female
  Weight: 67 kg

DRUGS (2)
  1. LORAZEPAM [Suspect]
     Indication: ATRIAL FIBRILLATION
     Dosage: 4 MG PER HOUR IV
     Route: 042
     Dates: start: 20100103, end: 20100107
  2. LORAZEPAM [Suspect]
     Indication: SEDATIVE THERAPY
     Dosage: 4 MG PER HOUR IV
     Route: 042
     Dates: start: 20100103, end: 20100107

REACTIONS (5)
  - DRUG TOXICITY [None]
  - LACTIC ACIDOSIS [None]
  - METABOLIC ACIDOSIS [None]
  - RENAL FAILURE ACUTE [None]
  - RENAL TUBULAR NECROSIS [None]
